FAERS Safety Report 9181402 (Version 2)
Quarter: 2013Q2

REPORT INFORMATION
  Report Type: Report from Study
  Country: JP (occurrence: JP)
  Receive Date: 20130322
  Receipt Date: 20130424
  Transmission Date: 20140414
  Serious: Yes (Other)
  Sender: FDA-Public Use
  Company Number: JP-ASTELLAS-2013JP004091

PATIENT
  Age: 90 Year
  Sex: Male
  Weight: 52.8 kg

DRUGS (4)
  1. MIRABEGRON [Suspect]
     Indication: HYPERTONIC BLADDER
     Dosage: 50 MG, UID/QD
     Route: 048
     Dates: start: 20121212, end: 20130308
  2. TOWARAT [Concomitant]
     Indication: HYPERTENSION
     Dosage: 20 MG, UNKNOWN/D
     Route: 048
  3. KETOBUN A [Concomitant]
     Indication: HYPERURICAEMIA
     Dosage: 200 MG, UNKNOWN/D
     Route: 048
  4. ANTIARRHYTHMIC AGENT [Concomitant]
     Route: 065

REACTIONS (1)
  - Arrhythmia [Recovered/Resolved]
